FAERS Safety Report 6825498-0 (Version None)
Quarter: 2010Q3

REPORT INFORMATION
  Report Type: 
  Country: None (occurrence: None)
  Receive Date: 20100708
  Receipt Date: 20070314
  Transmission Date: 20110219
  Serious: No
  Sender: FDA-Public Use
  Company Number: US-PFIZER INC-2006154130

PATIENT
  Sex: Female
  Weight: 104.33 kg

DRUGS (12)
  1. CHANTIX [Suspect]
     Indication: SMOKING CESSATION THERAPY
     Route: 048
     Dates: start: 20061203
  2. AVAPRO [Concomitant]
     Indication: HEART VALVE INCOMPETENCE
  3. DYAZIDE [Concomitant]
  4. FUROSEMIDE [Concomitant]
  5. POTASSIUM CHLORIDE [Concomitant]
  6. MAGNESIUM [Concomitant]
  7. SERZONE [Concomitant]
  8. LIPITOR [Concomitant]
  9. ESTRADIOL [Concomitant]
  10. LORAZEPAM [Concomitant]
  11. MACROGOL [Concomitant]
  12. LUNESTA [Concomitant]
     Indication: SLEEP DISORDER

REACTIONS (13)
  - ABDOMINAL PAIN UPPER [None]
  - ABNORMAL DREAMS [None]
  - ASTHENIA [None]
  - DECREASED APPETITE [None]
  - DIARRHOEA [None]
  - FATIGUE [None]
  - FLATULENCE [None]
  - GASTROINTESTINAL DISORDER [None]
  - HEADACHE [None]
  - HYPOAESTHESIA [None]
  - INCORRECT DOSE ADMINISTERED [None]
  - MALAISE [None]
  - NAUSEA [None]
